FAERS Safety Report 19494849 (Version 1)
Quarter: 2021Q3

REPORT INFORMATION
  Report Type: Report from Study
  Country: GE (occurrence: GE)
  Receive Date: 20210706
  Receipt Date: 20210706
  Transmission Date: 20211014
  Serious: Yes (Hospitalization)
  Sender: FDA-Public Use
  Company Number: GE-VIFOR (INTERNATIONAL) INC.-VIT-2021-04577

PATIENT
  Age: 69 Year
  Sex: Male
  Weight: 73.2 kg

DRUGS (7)
  1. BLINDED (CLINICAL TRIAL DRUG) [Suspect]
     Active Substance: INVESTIGATIONAL PRODUCT
     Dates: start: 20210614
  2. FLUTICASONE PROPIONATE AND SALMETEROL [Concomitant]
     Active Substance: FLUTICASONE PROPIONATE\SALMETEROL XINAFOATE
     Indication: CHRONIC OBSTRUCTIVE PULMONARY DISEASE
     Route: 048
     Dates: start: 2018
  3. ATORVASTATIN [Concomitant]
     Active Substance: ATORVASTATIN
     Indication: HYPERCHOLESTEROLAEMIA
     Route: 048
     Dates: start: 20210309
  4. BLINDED (CLINICAL TRIAL DRUG) [Suspect]
     Active Substance: INVESTIGATIONAL PRODUCT
     Indication: HYPERKALAEMIA
     Dosage: 3 PACKETS/DAY
     Dates: start: 20191203, end: 20210520
  5. BLINDED (CLINICAL TRIAL DRUG) [Suspect]
     Active Substance: INVESTIGATIONAL PRODUCT
     Dates: start: 20210518
  6. CARDIOMAGNYL [Concomitant]
     Active Substance: ASPIRIN\MAGNESIUM HYDROXIDE
     Indication: CORONARY ARTERY DISEASE
     Route: 048
     Dates: start: 20190917
  7. ATORVASTATIN [Concomitant]
     Active Substance: ATORVASTATIN
     Indication: CORONARY ARTERY DISEASE
     Route: 048
     Dates: start: 20190925, end: 20210308

REACTIONS (1)
  - Acute left ventricular failure [Recovered/Resolved]

NARRATIVE: CASE EVENT DATE: 20210519
